FAERS Safety Report 5532475-9 (Version None)
Quarter: 2007Q4

REPORT INFORMATION
  Report Type: 
  Country: None (occurrence: None)
  Receive Date: 20071203
  Receipt Date: 20071121
  Transmission Date: 20080405
  Serious: Yes (Hospitalization)
  Sender: FDA-Public Use
  Company Number: JP-PFIZER INC-2007098373

PATIENT
  Sex: Male

DRUGS (4)
  1. VFEND [Suspect]
     Indication: FUNGUS SEROLOGY TEST POSITIVE
     Route: 042
  2. CIPROFLOXACIN [Concomitant]
  3. ANTIBIOTICS [Concomitant]
  4. VANCOMYCIN [Concomitant]

REACTIONS (1)
  - RHABDOMYOLYSIS [None]
